FAERS Safety Report 4735268-5 (Version None)
Quarter: 2005Q3

REPORT INFORMATION
  Report Type: 
  Country: None (occurrence: None)
  Receive Date: 20050802
  Receipt Date: 20050725
  Transmission Date: 20060218
  Serious: Yes (Death)
  Sender: FDA-Public Use
  Company Number: 2005-BP-12611RO

PATIENT
  Sex: Female

DRUGS (2)
  1. ORLAAM [Suspect]
     Indication: DRUG ABUSER
     Dosage: NR
     Dates: end: 20000401
  2. ORLAAM [Suspect]
     Indication: PROPHYLAXIS
     Dosage: NR
     Dates: end: 20000401

REACTIONS (1)
  - DEATH [None]
